FAERS Safety Report 11606365 (Version 1)
Quarter: 2015Q4

REPORT INFORMATION
  Report Type: Spontaneous
  Country: US (occurrence: US)
  Receive Date: 20151007
  Receipt Date: 20151007
  Transmission Date: 20160304
  Serious: No
  Sender: FDA-Public Use
  Company Number: US-GLAXOSMITHKLINE-US2015GSK121808

PATIENT
  Age: 38 Year
  Sex: Male
  Weight: 86 kg

DRUGS (3)
  1. FLONASE [Suspect]
     Active Substance: FLUTICASONE PROPIONATE
     Indication: MULTIPLE ALLERGIES
  2. CHANTIX [Concomitant]
     Active Substance: VARENICLINE TARTRATE
  3. FAMOTIDINE. [Concomitant]
     Active Substance: FAMOTIDINE

REACTIONS (4)
  - Aggression [Unknown]
  - Depression [Unknown]
  - Mood altered [Unknown]
  - Drug ineffective [Unknown]
